FAERS Safety Report 16045188 (Version 23)
Quarter: 2020Q3

REPORT INFORMATION
  Report Type: Spontaneous
  Country: CA (occurrence: CA)
  Receive Date: 20190307
  Receipt Date: 20200809
  Transmission Date: 20201102
  Serious: Yes (Hospitalization, Other)
  Sender: FDA-Public Use
  Company Number: CA-CELLTRION INC.-2019CA017830

PATIENT

DRUGS (30)
  1. INFLECTRA [Suspect]
     Active Substance: INFLIXIMAB-DYYB
     Indication: CROHN^S DISEASE
     Dosage: 340 MG, WEEK 2, 6 THEN EVERY 8 WEEKS
     Route: 042
     Dates: start: 20181122, end: 20190228
  2. INFLECTRA [Suspect]
     Active Substance: INFLIXIMAB-DYYB
     Dosage: 340 MG, EVERY 4 WEEKS
     Route: 042
     Dates: start: 20190912
  3. INFLECTRA [Suspect]
     Active Substance: INFLIXIMAB-DYYB
     Dosage: 10 MG/KG EVERY 6 WEEKS
     Route: 042
     Dates: start: 20191220
  4. CORTISONE [Concomitant]
     Active Substance: CORTISONE
     Dosage: DECREASING DOSE
     Route: 065
     Dates: start: 201811
  5. AZATHIOPRINE. [Concomitant]
     Active Substance: AZATHIOPRINE
     Dosage: 50 MG, ALTERNATE DAY (EVERY OTHER DAY)
     Route: 048
     Dates: start: 2019
  6. INFLECTRA [Suspect]
     Active Substance: INFLIXIMAB-DYYB
     Dosage: 340 MG, EVERY 4 WEEKS
     Route: 042
     Dates: start: 20190718
  7. INFLECTRA [Suspect]
     Active Substance: INFLIXIMAB-DYYB
     Dosage: 10 MG/KG, EVERY 6 WEEKS
     Route: 042
     Dates: start: 20191107
  8. HYDROCORTISONE. [Concomitant]
     Active Substance: HYDROCORTISONE
     Indication: PREMEDICATION
     Dosage: 100 MG, UNK
     Route: 042
  9. INFLECTRA [Suspect]
     Active Substance: INFLIXIMAB-DYYB
     Indication: COLITIS
     Dosage: 340 MG, WEEK 2, 6 THEN EVERY 8 WEEKS
     Route: 042
     Dates: start: 20181206
  10. INFLECTRA [Suspect]
     Active Substance: INFLIXIMAB-DYYB
     Dosage: 340 MG, EVERY 4 WEEKS
     Route: 042
     Dates: start: 20190401, end: 20190912
  11. INFLECTRA [Suspect]
     Active Substance: INFLIXIMAB-DYYB
     Dosage: 340 MG, EVERY 4 WEEKS
     Route: 042
     Dates: start: 20190523
  12. INFLECTRA [Suspect]
     Active Substance: INFLIXIMAB-DYYB
     Dosage: 10 MG/KG EVERY 6 WEEKS
     Route: 042
     Dates: start: 20200507
  13. INFLECTRA [Suspect]
     Active Substance: INFLIXIMAB-DYYB
     Dosage: 10 MG/KG EVERY 6 WEEKS
     Route: 042
     Dates: start: 20200702
  14. HYDROCORTISONE. [Concomitant]
     Active Substance: HYDROCORTISONE
     Dosage: 100 MG, UNK
     Route: 042
     Dates: start: 20191220
  15. INFLECTRA [Suspect]
     Active Substance: INFLIXIMAB-DYYB
     Dosage: 340 MG, WEEK 2, 6 THEN EVERY 8 WEEKS
     Route: 042
     Dates: start: 20190228
  16. HYDROCORTISONE. [Concomitant]
     Active Substance: HYDROCORTISONE
     Dosage: 100 MG, UNK
     Route: 042
     Dates: start: 20200507
  17. INFLECTRA [Suspect]
     Active Substance: INFLIXIMAB-DYYB
     Dosage: 10 MG/KG EVERY 6 WEEKS
     Route: 042
     Dates: start: 20200131
  18. HYDROCORTISONE. [Concomitant]
     Active Substance: HYDROCORTISONE
     Dosage: 100 MG, UNK
     Route: 042
     Dates: start: 20200702, end: 20200702
  19. INFLECTRA [Suspect]
     Active Substance: INFLIXIMAB-DYYB
     Indication: COLITIS ULCERATIVE
     Dosage: 340 MG, WEEK 2, 6 THEN EVERY 8 WEEKS
     Route: 042
     Dates: start: 20190103
  20. INFLECTRA [Suspect]
     Active Substance: INFLIXIMAB-DYYB
     Dosage: 340 MG, EVERY 4 WEEKS
     Route: 042
     Dates: start: 20190425
  21. HYDROCORTISONE. [Concomitant]
     Active Substance: HYDROCORTISONE
     Dosage: 100 MG, UNK
     Route: 042
     Dates: start: 20190912
  22. HYDROCORTISONE. [Concomitant]
     Active Substance: HYDROCORTISONE
     Dosage: 100 MG, UNK
     Route: 042
     Dates: start: 20200313
  23. INFLECTRA [Suspect]
     Active Substance: INFLIXIMAB-DYYB
     Dosage: 340 MG, WEEK 2, 6 THEN EVERY 8 WEEKS
     Route: 042
     Dates: start: 20190228
  24. INFLECTRA [Suspect]
     Active Substance: INFLIXIMAB-DYYB
     Dosage: 340 MG, EVERY 4 WEEKS
     Route: 042
     Dates: start: 20190815
  25. INFLECTRA [Suspect]
     Active Substance: INFLIXIMAB-DYYB
     Dosage: 10 MG/KG EVERY 6 WEEKS
     Route: 042
     Dates: start: 20200313
  26. INFLECTRA [Suspect]
     Active Substance: INFLIXIMAB-DYYB
     Dosage: 340 MG, WEEK 2, 6 THEN EVERY 8 WEEKS
     Route: 042
     Dates: start: 20190301
  27. INFLECTRA [Suspect]
     Active Substance: INFLIXIMAB-DYYB
     Dosage: 340 MG, EVERY 4 WEEKS
     Route: 042
     Dates: start: 20190620
  28. INFLECTRA [Suspect]
     Active Substance: INFLIXIMAB-DYYB
     Dosage: 10 MG/KG EVERY 6 WEEKS
     Route: 042
     Dates: start: 20200131
  29. MEZAVANT [Concomitant]
     Active Substance: MESALAMINE
     Dosage: UNK
  30. AZATHIOPRINE. [Concomitant]
     Active Substance: AZATHIOPRINE
     Indication: COLITIS
     Dosage: 50 MG
     Route: 048
     Dates: start: 20190115, end: 2019

REACTIONS (29)
  - Pneumonia [Unknown]
  - Pyrexia [Recovered/Resolved]
  - Sinus pain [Recovered/Resolved]
  - Alopecia [Not Recovered/Not Resolved]
  - Rhinorrhoea [Recovering/Resolving]
  - Heart rate increased [Recovered/Resolved]
  - Hyperthermia [Recovered/Resolved]
  - Lower respiratory tract infection [Recovered/Resolved]
  - Pruritus [Recovering/Resolving]
  - Arthralgia [Unknown]
  - Arthritis [Unknown]
  - Off label use [Unknown]
  - Intentional product use issue [Unknown]
  - Inappropriate schedule of product administration [Unknown]
  - Colitis ulcerative [Unknown]
  - Drug level below therapeutic [Recovered/Resolved]
  - Hordeolum [Recovered/Resolved]
  - Blood pressure fluctuation [Not Recovered/Not Resolved]
  - Headache [Unknown]
  - Illness [Unknown]
  - Nasopharyngitis [Recovered/Resolved]
  - Rotator cuff syndrome [Unknown]
  - Decreased immune responsiveness [Unknown]
  - Drug specific antibody present [Recovered/Resolved]
  - Clostridium difficile infection [Unknown]
  - Fatigue [Not Recovered/Not Resolved]
  - Condition aggravated [Unknown]
  - Myalgia [Unknown]
  - Cough [Not Recovered/Not Resolved]

NARRATIVE: CASE EVENT DATE: 201901
